FAERS Safety Report 16282257 (Version 3)
Quarter: 2019Q2

REPORT INFORMATION
  Report Type: Report from Study
  Country: FR (occurrence: FR)
  Receive Date: 20190507
  Receipt Date: 20190528
  Transmission Date: 20190711
  Serious: Yes (Death, Hospitalization)
  Sender: FDA-Public Use
  Company Number: FR-EXELIXIS-XL18419020873

PATIENT
  Age: 29 Year
  Sex: Female
  Weight: 45 kg

DRUGS (4)
  1. CABOZANTINIB [Suspect]
     Active Substance: CABOZANTINIB
     Dosage: 60 MG, 5 DAYS PER WEEK
     Route: 048
     Dates: start: 201712, end: 20180125
  2. CABOZANTINIB [Suspect]
     Active Substance: CABOZANTINIB
     Dosage: 40 MG, 5 DAYS PER WEEK
     Route: 048
     Dates: start: 20180126, end: 20180208
  3. CABOZANTINIB [Suspect]
     Active Substance: CABOZANTINIB
     Indication: RENAL CELL CARCINOMA
     Dosage: 60 MG, QD
     Route: 048
     Dates: start: 20171204, end: 20171216
  4. LEVOTHYROX [Concomitant]
     Active Substance: LEVOTHYROXINE
     Indication: HYPOTHYROIDISM
     Dosage: UNK

REACTIONS (13)
  - Hyponatraemia [Unknown]
  - Pruritus [Recovered/Resolved]
  - Gastrooesophageal reflux disease [Unknown]
  - Rash [Unknown]
  - Asthenia [Unknown]
  - Ascites [Not Recovered/Not Resolved]
  - Decreased appetite [Not Recovered/Not Resolved]
  - Constipation [Unknown]
  - Capillary leak syndrome [Not Recovered/Not Resolved]
  - Hypothyroidism [Not Recovered/Not Resolved]
  - Pleural effusion [Not Recovered/Not Resolved]
  - Cell death [Not Recovered/Not Resolved]
  - Weight decreased [Not Recovered/Not Resolved]

NARRATIVE: CASE EVENT DATE: 201712
